FAERS Safety Report 5016392-9 (Version None)
Quarter: 2006Q2

REPORT INFORMATION
  Report Type: 
  Country: None (occurrence: None)
  Receive Date: 20060602
  Receipt Date: 20060524
  Transmission Date: 20061013
  Serious: Yes (Death, Hospitalization)
  Sender: FDA-Public Use
  Company Number: NO-JNJFOC-20060505692

PATIENT
  Sex: Male

DRUGS (2)
  1. REMICADE [Suspect]
     Route: 042
  2. PREDNISOLONE [Concomitant]
     Indication: COLITIS ULCERATIVE
     Route: 048

REACTIONS (1)
  - PNEUMOCYSTIS JIROVECI INFECTION [None]
